FAERS Safety Report 22165433 (Version 1)
Quarter: 2023Q2

REPORT INFORMATION
  Report Type: Report from Study
  Country: US (occurrence: None)
  Receive Date: 20230403
  Receipt Date: 20230403
  Transmission Date: 20230722
  Serious: Yes (Hospitalization)
  Sender: FDA-Public Use
  Company Number: US-ROCHE-3319609

PATIENT
  Age: 78 Year
  Sex: Male

DRUGS (5)
  1. ATEZOLIZUMAB [Suspect]
     Active Substance: ATEZOLIZUMAB
     Indication: Oesophageal adenocarcinoma
     Dosage: LAST DOSE OF TREATMENT WAS RECEIVED ON 14/FEB/2023
     Route: 041
     Dates: start: 20221219
  2. OXALIPLATIN [Suspect]
     Active Substance: OXALIPLATIN
     Indication: Oesophageal adenocarcinoma
     Route: 065
     Dates: start: 20221219
  3. FLUOROURACIL [Suspect]
     Active Substance: FLUOROURACIL
     Indication: Oesophageal adenocarcinoma
     Route: 065
  4. CODEINE [Concomitant]
     Active Substance: CODEINE
     Indication: Pain
  5. TRAMADOL [Concomitant]
     Active Substance: TRAMADOL
     Indication: Pain

REACTIONS (1)
  - Intervertebral disc degeneration [Unknown]

NARRATIVE: CASE EVENT DATE: 20230222
